FAERS Safety Report 6043789-0 (Version None)
Quarter: 2009Q1

REPORT INFORMATION
  Report Type: 
  Country: None (occurrence: None)
  Receive Date: 20090120
  Receipt Date: 20090114
  Transmission Date: 20090719
  Serious: Yes (Other)
  Sender: FDA-Public Use
  Company Number: PHHY2009BR01277

PATIENT
  Age: 9 Year
  Sex: Female

DRUGS (1)
  1. TEGRETOL [Suspect]
     Indication: CONVULSION
     Dosage: 10 MG A.M, 10 MG A.M
     Route: 048

REACTIONS (7)
  - DYSPHAGIA [None]
  - FALL [None]
  - HYPERHIDROSIS [None]
  - HYPOTONIA [None]
  - ORAL DISORDER [None]
  - PYREXIA [None]
  - STOMATITIS [None]
